FAERS Safety Report 9437644 (Version 1)
Quarter: 2013Q3

REPORT INFORMATION
  Report Type: Spontaneous
  Country: US (occurrence: None)
  Receive Date: 20130731
  Receipt Date: 20130731
  Transmission Date: 20140515
  Serious: Yes (Life-Threatening, Other)
  Sender: FDA-Public Use
  Company Number: AUR-APL-2013-06189

PATIENT
  Age: 73 Year
  Sex: Female

DRUGS (3)
  1. METFORMIN (METFORMIN) [Suspect]
  2. LISINOPRIL (LISINOPRIL) [Suspect]
  3. IBUPROFEN (IBUPROFEN) [Suspect]
     Dosage: (2400 MG TOTAL), UNKNOWN

REACTIONS (4)
  - Renal failure acute [None]
  - Humerus fracture [None]
  - Fall [None]
  - Impaired healing [None]
